FAERS Safety Report 5130789-8 (Version None)
Quarter: 2006Q4

REPORT INFORMATION
  Report Type: 
  Country: None (occurrence: None)
  Receive Date: 20061019
  Receipt Date: 20061006
  Transmission Date: 20070319
  Serious: Yes (Hospitalization)
  Sender: FDA-Public Use
  Company Number: US-BRISTOL-MYERS SQUIBB COMPANY-13544424

PATIENT
  Age: 83 Year
  Sex: Female

DRUGS (13)
  1. COUMADIN [Suspect]
     Indication: ATRIAL FIBRILLATION
     Dates: start: 20060922
  2. COUMADIN [Suspect]
     Dates: start: 20060922
  3. COUMADIN [Suspect]
     Dates: start: 20040101, end: 20060830
  4. COUMADIN [Suspect]
     Dates: start: 20040101, end: 20060830
  5. NAMENDA [Suspect]
     Indication: AMNESIA
     Dosage: 5MG-BID-PO- 09/04-CONTINUING; INCREASED 5MG-BID
     Route: 048
     Dates: start: 20060904
  6. NAMENDA [Suspect]
     Route: 048
     Dates: start: 20060828, end: 20060903
  7. THALIDOMIDE [Concomitant]
  8. ZOLOFT [Concomitant]
  9. ATENOLOL [Concomitant]
  10. FUROSEMIDE [Concomitant]
  11. POTASSIUM [Concomitant]
  12. MEGESTROL ACETATE [Concomitant]
     Dates: start: 20060901
  13. MEGESTROL ACETATE [Concomitant]
     Dates: end: 20060830

REACTIONS (5)
  - ASTHENIA [None]
  - CONTUSION [None]
  - FALL [None]
  - INTERNATIONAL NORMALISED RATIO INCREASED [None]
  - SOMNOLENCE [None]
